FAERS Safety Report 21072585 (Version 1)
Quarter: 2022Q3

REPORT INFORMATION
  Report Type: Spontaneous
  Country: BR (occurrence: BR)
  Receive Date: 20220712
  Receipt Date: 20220712
  Transmission Date: 20221026
  Serious: Yes (Hospitalization, Other)
  Sender: FDA-Public Use
  Company Number: BR-BAUSCH-BL-2022-017600

PATIENT
  Age: 92 Year
  Sex: Male
  Weight: 74 kg

DRUGS (4)
  1. CARDIZEM [Suspect]
     Active Substance: DILTIAZEM HYDROCHLORIDE
     Indication: Hypertension
     Route: 048
     Dates: start: 2015
  2. CARDIZEM [Suspect]
     Active Substance: DILTIAZEM HYDROCHLORIDE
     Indication: Chest pain
  3. SUSTRATE [Suspect]
     Active Substance: PROPATYL NITRATE
     Indication: Product used for unknown indication
     Dosage: 1 DF 1 DOSAGE FORM, 2 EVERY 1 DAY; UNKNOWN
     Route: 065
  4. GLICLAZIDE [Concomitant]
     Active Substance: GLICLAZIDE
     Indication: Product used for unknown indication

REACTIONS (3)
  - Cerebrovascular accident [Unknown]
  - Balance disorder [Unknown]
  - Aphasia [Recovered/Resolved]

NARRATIVE: CASE EVENT DATE: 20170406
